FAERS Safety Report 7067789-7 (Version None)
Quarter: 2010Q4

REPORT INFORMATION
  Report Type: 
  Country: None (occurrence: None)
  Receive Date: 20101028
  Receipt Date: 20100805
  Transmission Date: 20110411
  Serious: No
  Sender: FDA-Public Use
  Company Number: A0874236A

PATIENT
  Age: 74 Year
  Sex: Male

DRUGS (9)
  1. SEREVENT [Suspect]
     Indication: EMPHYSEMA
     Dosage: 1PUFF TWICE PER DAY
     Route: 055
     Dates: start: 20080101
  2. QVAR 40 [Concomitant]
  3. COMBIVENT [Concomitant]
  4. VERAPAMIL [Concomitant]
  5. ALBUTEROL [Concomitant]
  6. CIPROFLOXACIN [Concomitant]
  7. FISH OIL [Concomitant]
  8. CLONAZEPAM [Concomitant]
  9. FLUOXETINE [Concomitant]

REACTIONS (1)
  - DRUG INEFFECTIVE [None]
